FAERS Safety Report 5027373-3 (Version None)
Quarter: 2006Q2

REPORT INFORMATION
  Report Type: 
  Country: None (occurrence: None)
  Receive Date: 20060615
  Receipt Date: 20060607
  Transmission Date: 20061013
  Serious: Yes (Other)
  Sender: FDA-Public Use
  Company Number: BR-MERCK-0606BRA00014

PATIENT
  Sex: Female

DRUGS (1)
  1. ALDOMET-M [Suspect]
     Indication: HYPERTENSION
     Route: 048

REACTIONS (4)
  - ALOPECIA [None]
  - BONE MARROW FAILURE [None]
  - DIZZINESS [None]
  - NUCHAL RIGIDITY [None]
